FAERS Safety Report 14719658 (Version 2)
Quarter: 2018Q3

REPORT INFORMATION
  Report Type: Report from Study
  Country: None (occurrence: CO)
  Receive Date: 20180405
  Receipt Date: 20180724
  Transmission Date: 20181010
  Serious: Yes (Other)
  Sender: FDA-Public Use
  Company Number: CO-ABBVIE-18K-036-2310579-00

PATIENT
  Age: 68 Year
  Sex: Female
  Weight: 70 kg

DRUGS (1)
  1. HUMIRA [Suspect]
     Active Substance: ADALIMUMAB
     Indication: PSORIASIS
     Route: 058
     Dates: start: 20160825, end: 20171115

REACTIONS (4)
  - Drug administration error [Recovering/Resolving]
  - Dental caries [Recovering/Resolving]
  - Gingival recession [Recovering/Resolving]
  - Meniscus injury [Recovering/Resolving]

NARRATIVE: CASE EVENT DATE: 201711
